FAERS Safety Report 18693357 (Version 1)
Quarter: 2021Q1

REPORT INFORMATION
  Report Type: Spontaneous
  Country: IN (occurrence: IN)
  Receive Date: 20210104
  Receipt Date: 20210104
  Transmission Date: 20210419
  Serious: Yes (Other)
  Sender: FDA-Public Use
  Company Number: IN-LUPIN LIMITED-2020-08966

PATIENT
  Age: 23 Year
  Sex: Female

DRUGS (7)
  1. METFORMIN [Suspect]
     Active Substance: METFORMIN HYDROCHLORIDE
     Indication: DRUG THERAPY
     Dosage: 3 DOSAGE FORM, QD (METFORMIN TABLET 500MG THREE TIMES DAILY)
     Route: 065
  2. METFORMIN [Suspect]
     Active Substance: METFORMIN HYDROCHLORIDE
     Indication: OVULATION INDUCTION
  3. HUMAN CHORIONIC GONADOTROPIN [Suspect]
     Active Substance: GONADOTROPHIN, CHORIONIC
     Indication: OVULATION INDUCTION
     Dosage: 1500 INTERNATIONAL UNIT
     Route: 030
  4. CLOMIPHENE CITRATE. [Suspect]
     Active Substance: CLOMIPHENE CITRATE
     Dosage: 100 MILLIGRAM (AFTER PRESENTATION)
     Route: 065
  5. CLOMIPHENE CITRATE. [Suspect]
     Active Substance: CLOMIPHENE CITRATE
     Indication: OVULATION INDUCTION
     Dosage: UNK (INITIAL DOSAGES NOT STATED)
     Route: 065
  6. PROGESTERONE. [Suspect]
     Active Substance: PROGESTERONE
     Indication: HORMONE THERAPY
     Dosage: UNK
     Route: 065
  7. LEUPROLIDE ACETATE. [Suspect]
     Active Substance: LEUPROLIDE ACETATE
     Indication: OVULATION INDUCTION
     Dosage: 1 MILLIGRAM
     Route: 058

REACTIONS (3)
  - Drug ineffective [Unknown]
  - Ovarian hyperstimulation syndrome [Recovered/Resolved]
  - Maternal exposure during pregnancy [Unknown]
